FAERS Safety Report 17882023 (Version 1)
Quarter: 2020Q2

REPORT INFORMATION
  Report Type: Spontaneous
  Country: US (occurrence: US)
  Receive Date: 20200610
  Receipt Date: 20200610
  Transmission Date: 20200714
  Serious: No
  Sender: FDA-Public Use
  Company Number: US-SEPTODONT-201905595

PATIENT
  Age: 27 Year
  Sex: Female

DRUGS (3)
  1. SEPTOCAINE AND EPINEPHRINE [Suspect]
     Active Substance: ARTICAINE HYDROCHLORIDE\EPINEPHRINE BITARTRATE
     Indication: INFILTRATION ANAESTHESIA
     Dosage: 01 CARPULES OF 1.7CC
     Route: 004
     Dates: start: 20191031, end: 20191031
  2. SEPTOCAINE AND EPINEPHRINE [Suspect]
     Active Substance: ARTICAINE HYDROCHLORIDE\EPINEPHRINE BITARTRATE
     Indication: INFILTRATION ANAESTHESIA
     Dosage: 01 CARPULES OF 1.7CC
     Route: 004
     Dates: start: 20191031, end: 20191031
  3. 2% LIDOCAINE WITH 1:100K EPI (EPINEPHRINE BITARTRATE\LIDOCAINE HYDROCHLORIDE) [Suspect]
     Active Substance: EPINEPHRINE BITARTRATE\LIDOCAINE HYDROCHLORIDE
     Indication: DENTAL LOCAL ANAESTHESIA
     Dosage: 2 CARPULES OF 1.7CC. PT NEEDED MORE ANESTHETIC, ADDITIONAL BLOCK WAS GIVEN
     Route: 004
     Dates: start: 20191031, end: 20191031

REACTIONS (3)
  - Vomiting [Recovered/Resolved]
  - Nausea [Recovered/Resolved]
  - Dizziness [Recovered/Resolved]

NARRATIVE: CASE EVENT DATE: 20191031
